FAERS Safety Report 5436959-3 (Version None)
Quarter: 2007Q3

REPORT INFORMATION
  Report Type: 
  Country: None (occurrence: None)
  Receive Date: 20070831
  Receipt Date: 20070828
  Transmission Date: 20080115
  Serious: Yes (Life-Threatening, Hospitalization)
  Sender: FDA-Public Use
  Company Number: CZ-BRISTOL-MYERS SQUIBB COMPANY-13888011

PATIENT
  Age: 66 Year
  Sex: Male

DRUGS (5)
  1. SPRYCEL [Suspect]
     Indication: CHRONIC MYELOID LEUKAEMIA
     Route: 048
     Dates: start: 20070411, end: 20070607
  2. MILURIT [Concomitant]
     Dates: start: 20061101
  3. FURON [Concomitant]
     Dates: start: 20061201, end: 20070619
  4. ZYRTEC [Concomitant]
     Dates: start: 20070328, end: 20070608
  5. TENORMIN [Concomitant]
     Dates: start: 20070328, end: 20070509

REACTIONS (8)
  - ATRIAL FLUTTER [None]
  - ATRIOVENTRICULAR BLOCK SECOND DEGREE [None]
  - CARDIOPULMONARY FAILURE [None]
  - ERYSIPELAS [None]
  - FLUID RETENTION [None]
  - GENERALISED OEDEMA [None]
  - HYPERTENSION [None]
  - WEIGHT INCREASED [None]
